FAERS Safety Report 5500578-0 (Version None)
Quarter: 2007Q4

REPORT INFORMATION
  Report Type: 
  Country: None (occurrence: None)
  Receive Date: 20071029
  Receipt Date: 20071016
  Transmission Date: 20080405
  Serious: Yes (Death)
  Sender: FDA-Public Use
  Company Number: FR-NOVOPROD-268649

PATIENT
  Sex: Male

DRUGS (1)
  1. NOVONORM [Suspect]

REACTIONS (1)
  - HEPATIC CIRRHOSIS [None]
